FAERS Safety Report 20735108 (Version 2)
Quarter: 2025Q2

REPORT INFORMATION
  Report Type: Spontaneous
  Country: IN (occurrence: IN)
  Receive Date: 20220421
  Receipt Date: 20250523
  Transmission Date: 20250717
  Serious: Yes (Hospitalization, Other)
  Sender: PFIZER
  Company Number: IN-PFIZER INC-202200569054

PATIENT
  Age: 70 Year
  Sex: Female

DRUGS (8)
  1. PALBOCICLIB [Suspect]
     Active Substance: PALBOCICLIB
     Indication: Breast cancer metastatic
     Dosage: 125 MG, 1X/DAY
     Route: 048
     Dates: start: 201810
  2. LETROZOLE [Concomitant]
     Active Substance: LETROZOLE
     Indication: Breast cancer metastatic
     Dosage: 2.5 MG, 1X/DAY (1-0-0) AFTER FOOD
     Dates: start: 201810
  3. ZOLEDRONIC ACID [Concomitant]
     Active Substance: ZOLEDRONIC ACID
  4. CALDIKIND PLUS [Concomitant]
     Dosage: 1 DF, 1X/DAY (AFTER FOOD, 1-0-0)
  5. CHOLECALCIFEROL [Concomitant]
     Active Substance: CHOLECALCIFEROL
     Dosage: 1 DF, MONTHLY (AFTER FOOD, 1-0-0, 6 MONTHS, MONTHLY)
  6. PAN [Concomitant]
     Dosage: 1 DF, 1X/DAY (1-0-0; DAILY, FOR 5 DAYS)
  7. CALPOL [Concomitant]
     Active Substance: ACETAMINOPHEN
  8. A TO Z NS [ASCORBIC ACID;BIOTIN;COLECALCIFEROL;IODINE;IRON;LYSINE HYDR [Concomitant]
     Dosage: 1 DF, 1X/DAY FOR 30 DAYS

REACTIONS (6)
  - Hip fracture [Unknown]
  - Hydronephrosis [Unknown]
  - Breast cancer metastatic [Unknown]
  - Malignant neoplasm progression [Unknown]
  - Granuloma [Unknown]
  - Procedural pain [Unknown]

NARRATIVE: CASE EVENT DATE: 20210702
